FAERS Safety Report 23421519 (Version 1)
Quarter: 2024Q1

REPORT INFORMATION
  Report Type: Spontaneous
  Country: US (occurrence: None)
  Receive Date: 20240118
  Receipt Date: 20240118
  Transmission Date: 20240409
  Serious: No
  Sender: FDA-Public Use
  Company Number: None

PATIENT
  Age: 32 Year
  Sex: Female

DRUGS (1)
  1. HUMIRA [Suspect]
     Active Substance: ADALIMUMAB
     Indication: Hidradenitis
     Dosage: INJECT 40MG SUBCUTANEOUSLY ONCE WEEKLY AS DIRECTED.
     Route: 058
     Dates: start: 202312

REACTIONS (4)
  - Bronchitis [None]
  - Lung disorder [None]
  - Illness [None]
  - Therapy interrupted [None]
